FAERS Safety Report 13950441 (Version 3)
Quarter: 2018Q3

REPORT INFORMATION
  Report Type: Spontaneous
  Country: US (occurrence: US)
  Receive Date: 20170908
  Receipt Date: 20180917
  Transmission Date: 20181010
  Serious: Yes (Other)
  Sender: FDA-Public Use
  Company Number: US-DSJP-DSU-2017-135907

PATIENT

DRUGS (2)
  1. BENICAR HCT [Suspect]
     Active Substance: HYDROCHLOROTHIAZIDE\OLMESARTAN MEDOXOMIL
     Indication: HYPERTENSION
     Dosage: 40/25 MG, QD
     Route: 048
     Dates: start: 20050316, end: 20120412
  2. BENICAR [Suspect]
     Active Substance: OLMESARTAN MEDOXOMIL
     Indication: HYPERTENSION
     Dosage: 40 MG, QD
     Route: 048
     Dates: start: 20050316, end: 20120412

REACTIONS (9)
  - Pancreatitis [Unknown]
  - Diverticulum intestinal [Unknown]
  - Acute kidney injury [Unknown]
  - Gastritis [Recovering/Resolving]
  - Gastroenteritis [Recovering/Resolving]
  - Diverticulitis [Unknown]
  - Oesophageal candidiasis [Unknown]
  - Haemorrhoids [Unknown]
  - Large intestine polyp [Not Recovered/Not Resolved]

NARRATIVE: CASE EVENT DATE: 20070618
